FAERS Safety Report 6209787-9 (Version None)
Quarter: 2009Q2

REPORT INFORMATION
  Report Type: 
  Country: None (occurrence: None)
  Receive Date: 20090601
  Receipt Date: 20090528
  Transmission Date: 20091009
  Serious: Yes (Death, Other)
  Sender: FDA-Public Use
  Company Number: GB-JNJFOC-20090506942

PATIENT
  Age: 18 Year

DRUGS (5)
  1. ITRACONAZOLE [Suspect]
     Indication: ANTIFUNGAL PROPHYLAXIS
     Route: 065
  2. ALEMTUZUMAB [Suspect]
     Indication: STEM CELL TRANSPLANT
     Route: 065
  3. BUSULFAN [Suspect]
     Indication: STEM CELL TRANSPLANT
     Route: 065
  4. CYCLOPHOSPHAMIDE [Suspect]
     Indication: STEM CELL TRANSPLANT
     Route: 065
  5. CO-TRIMOXAZOLE [Suspect]
     Indication: PROPHYLAXIS
     Route: 065

REACTIONS (3)
  - ASPERGILLOSIS [None]
  - DRUG INEFFECTIVE [None]
  - MULTI-ORGAN FAILURE [None]
